FAERS Safety Report 12641396 (Version 3)
Quarter: 2016Q3

REPORT INFORMATION
  Report Type: Spontaneous
  Country: US (occurrence: US)
  Receive Date: 20160810
  Receipt Date: 20160926
  Transmission Date: 20161109
  Serious: Yes (Other)
  Sender: FDA-Public Use
  Company Number: US-PFIZER INC-2016377992

PATIENT
  Age: 56 Year
  Sex: Female
  Weight: 107.9 kg

DRUGS (15)
  1. LETROZOLE. [Concomitant]
     Active Substance: LETROZOLE
     Indication: NEOPLASM MALIGNANT
     Dosage: 2.5 MG, DAILY (2.5MG ONE TABLET BY MOUTH DAILY)(DOSAGE:2.5MG QD)
     Route: 048
     Dates: start: 201601
  2. LISINOPRIL. [Concomitant]
     Active Substance: LISINOPRIL
     Indication: HYPERTENSION
     Dosage: 20 MG, DAILY (20MG ONE TABLET BY MOUTH DAILY)
     Route: 048
  3. BENZONATATE. [Concomitant]
     Active Substance: BENZONATATE
     Dosage: 100 MG, UNK
  4. IBRANCE [Suspect]
     Active Substance: PALBOCICLIB
     Dosage: 125 MG, CYCLIC (125MG ONE CAPSULE BY MOUTH DAILY FOR 21 DAYS, AND THEN ONE WEEK OFF)
     Route: 048
  5. TRAMADOL. [Concomitant]
     Active Substance: TRAMADOL
     Indication: PAIN
     Dosage: 1 DF, 2X/DAY (ONE TABLET BY MOUTH TWICE A DAY)
     Route: 048
  6. TRAMADOL. [Concomitant]
     Active Substance: TRAMADOL
     Dosage: 50 MG, UNK
  7. LIOTHYRONINE [Concomitant]
     Active Substance: LIOTHYRONINE
     Indication: THYROID DISORDER
     Dosage: 5 UG, DAILY (5MCG ONE TABLET BY MOUTH DAILY)(PAD 5MCG 1QD)
     Route: 048
  8. PROAIR RESPICLICK [Concomitant]
     Active Substance: ALBUTEROL SULFATE
     Indication: ASTHMA
     Dosage: 0.65GRAM NET CONTENT TWO PUFFS BY MOUTH FOUR TIMES A DAY
     Dates: start: 20160720
  9. CALCIUM [Concomitant]
     Active Substance: CALCIUM
     Dosage: UNK UNK, DAILY
  10. SKELAXIN [Concomitant]
     Active Substance: METAXALONE
     Dosage: 800 MG, 4X/DAY (DOSAGE:800MG QID)
  11. IBRANCE [Suspect]
     Active Substance: PALBOCICLIB
     Dosage: 125 MG, CYCLIC (D 1-21 FB 7 DAY BREAK)
     Route: 048
     Dates: start: 20160304
  12. METHYLPREDNISOLONE. [Concomitant]
     Active Substance: METHYLPREDNISOLONE
     Dosage: 4 MG, UNK (DOSE PK)
  13. IBRANCE [Suspect]
     Active Substance: PALBOCICLIB
     Indication: BREAST CANCER METASTATIC
     Dosage: 125 MG, CYCLIC (125MG ONE CAPSULE BY MOUTH DAILY FOR 21 DAYS, AND THEN ONE WEEK OFF)
     Route: 048
     Dates: start: 201601
  14. SYNTHROID [Concomitant]
     Active Substance: LEVOTHYROXINE SODIUM
     Indication: THYROID DISORDER
     Dosage: 250 UG, DAILY (125MCG TWO TABLETS BY MOUTH DAILY)
     Route: 048
  15. ASPIRIN. [Concomitant]
     Active Substance: ASPIRIN
     Dosage: 81 MG, DAILY (81MG ONE TABLET BY MOUTH DAILY)
     Route: 048

REACTIONS (4)
  - White blood cell count decreased [Recovered/Resolved]
  - Bronchitis [Unknown]
  - Tooth infection [Unknown]
  - Neutrophil count decreased [Recovered/Resolved]

NARRATIVE: CASE EVENT DATE: 2016
